FAERS Safety Report 9776857 (Version 1)
Quarter: 2013Q4

REPORT INFORMATION
  Report Type: Report from Study
  Country: NL (occurrence: NL)
  Receive Date: 20131221
  Receipt Date: 20131221
  Transmission Date: 20140711
  Serious: Yes (Death)
  Sender: FDA-Public Use
  Company Number: PHHY2013NL149122

PATIENT
  Sex: Male

DRUGS (2)
  1. SANDOSTATIN LAR [Suspect]
     Indication: PANCREATIC NEUROENDOCRINE TUMOUR
     Dosage: 30 MG, ONCE PER 4 WEEK
     Dates: start: 20120222
  2. SANDOSTATIN LAR [Suspect]
     Dosage: 30 MG, ONCE PER 4 WEEK
     Dates: start: 20130916

REACTIONS (1)
  - Death [Fatal]
